FAERS Safety Report 5594048-1 (Version None)
Quarter: 2008Q1

REPORT INFORMATION
  Report Type: 
  Country: None (occurrence: None)
  Receive Date: 20080114
  Receipt Date: 20080102
  Transmission Date: 20080703
  Serious: Yes (Life-Threatening)
  Sender: FDA-Public Use
  Company Number: 2008AL000041

PATIENT
  Age: 44 Year
  Sex: Female

DRUGS (1)
  1. PRENATAL RX TABLETS (ATLLC) (PRENATAL RX TABLETS (ATLLC)) [Suspect]

REACTIONS (2)
  - ANAPHYLACTOID REACTION [None]
  - SKIN TEST POSITIVE [None]
